FAERS Safety Report 7353041-9 (Version None)
Quarter: 2011Q1

REPORT INFORMATION
  Report Type: 
  Country: None (occurrence: None)
  Receive Date: 20110315
  Receipt Date: 20110304
  Transmission Date: 20110831
  Serious: Yes (Other)
  Sender: FDA-Public Use
  Company Number: B0639548A

PATIENT
  Sex: Male

DRUGS (13)
  1. CO-CARELDOPA [Concomitant]
  2. SIMVASTATIN [Concomitant]
  3. RAMIPRIL [Concomitant]
  4. STALEVO 100 [Concomitant]
  5. REQUIP [Suspect]
     Indication: PARKINSON'S DISEASE
     Dates: start: 19980201, end: 20080801
  6. ATENOLOL [Concomitant]
  7. BENDROFLUMETHIAZIDE [Concomitant]
  8. LEVODOPA [Concomitant]
  9. QUETIAPINE [Concomitant]
  10. ASPIRIN [Concomitant]
  11. ORPHENADRINE CITRATE [Concomitant]
  12. TEMAZEPAM [Concomitant]
  13. ISOTARD [Concomitant]

REACTIONS (7)
  - PATHOLOGICAL GAMBLING [None]
  - COGNITIVE DISORDER [None]
  - HYPERSEXUALITY [None]
  - HALLUCINATION, VISUAL [None]
  - SOCIAL PROBLEM [None]
  - SOMNOLENCE [None]
  - DEPENDENCE [None]
